FAERS Safety Report 7351833-3 (Version None)
Quarter: 2011Q1

REPORT INFORMATION
  Report Type: 
  Country: None (occurrence: None)
  Receive Date: 20110315
  Receipt Date: 20100602
  Transmission Date: 20110831
  Serious: Yes (Hospitalization, Other)
  Sender: FDA-Public Use
  Company Number: US-BAYER-201011096NA

PATIENT
  Sex: Female

DRUGS (27)
  1. TRIAMTERENE AND HYDROCHLOROTHIAZIDE [Concomitant]
     Dosage: 2 TABLETS DAILY
     Route: 048
     Dates: start: 20050419
  2. LOTREL [Concomitant]
     Dosage: 10/20 MG CAPSULE DAILY
     Route: 048
     Dates: start: 20050720
  3. DIAZEPAM [Concomitant]
     Dosage: 5 MG, UNK
     Route: 048
     Dates: start: 20050918
  4. CLINDAMYCIN [Concomitant]
     Dosage: 300 MG, UNK
     Route: 048
     Dates: start: 20060628
  5. YASMIN [Suspect]
     Indication: PRODUCT USED FOR UNKNOWN INDICATION
     Route: 048
     Dates: end: 20090116
  6. OCELLA [Suspect]
     Indication: PRODUCT USED FOR UNKNOWN INDICATION
     Route: 048
     Dates: end: 20090116
  7. COLESTID [Concomitant]
  8. ROCEPHIN [Concomitant]
  9. HEPARIN [Concomitant]
  10. UNCODEABLE ^UNCLASSIFIABLE^ [Concomitant]
     Dosage: 10/20 MG DAILY
     Route: 048
     Dates: start: 20070618
  11. YAZ [Suspect]
     Indication: PRODUCT USED FOR UNKNOWN INDICATION
     Route: 048
     Dates: end: 20090116
  12. FLUCONAZOLE [Concomitant]
     Dosage: 150 MG, UNK
     Route: 048
     Dates: start: 20050920
  13. LIPITOR [Concomitant]
     Dosage: 40 MG, QD
     Route: 048
     Dates: start: 20060609
  14. CEFUROXIME [Concomitant]
     Dosage: 500 MG, UNK
     Route: 048
     Dates: start: 20070510
  15. CYCLOBENZAPRINE [Concomitant]
     Dosage: 10 MG, QID
     Dates: start: 20050726
  16. RHINOCORT [Concomitant]
     Dosage: 32 ?G, UNK
     Route: 049
     Dates: start: 20051111
  17. ALPRAZOLAM [Concomitant]
     Dosage: 1 MG, QID
     Route: 048
     Dates: start: 20051123
  18. DIOVAN HCT [Concomitant]
     Dosage: UNK
     Route: 048
     Dates: start: 20070217
  19. WARFARIN SODIUM [Concomitant]
  20. PROMETHAZINE [Concomitant]
     Dosage: 25 MG, PRN
     Dates: start: 20060605
  21. BENAZEPRIL HYDROCHLORIDE [Concomitant]
     Dosage: 20 MG, UNK
     Route: 048
     Dates: start: 20050823
  22. BUPROPION HCL [Concomitant]
     Dosage: 150 MG, UNK
     Route: 048
     Dates: start: 20051101
  23. METHYLPREDNISOLONE [Concomitant]
     Dosage: 4 MG, UNK
     Route: 048
     Dates: start: 20070601
  24. LIPITOR [Concomitant]
     Dosage: 40 MG, UNK
     Route: 048
     Dates: start: 20050517
  25. AZITHROMYCIN [Concomitant]
     Dosage: 250 MG, UNK
     Route: 048
     Dates: start: 20050913
  26. HYDROCODONE BITARTRATE AND ACETAMINOPHEN [Concomitant]
     Indication: PAIN
     Dosage: UNK UNK, Q4HR
     Dates: start: 20060127
  27. FERROUS SULFATE TAB [Concomitant]
     Dosage: 325 MG, BID
     Route: 048
     Dates: start: 20051108

REACTIONS (46)
  - HEPATIC ARTERY THROMBOSIS [None]
  - HEPATIC INFARCTION [None]
  - DEPRESSION [None]
  - ABSCESS FUNGAL [None]
  - DYSARTHRIA [None]
  - SEPTIC SHOCK [None]
  - BACTERAEMIA [None]
  - GASTROOESOPHAGEAL REFLUX DISEASE [None]
  - MITRAL VALVE PROLAPSE [None]
  - THROMBOCYTOSIS [None]
  - HEPATIC ENZYME INCREASED [None]
  - DIVERTICULITIS [None]
  - GASTROINTESTINAL HAEMORRHAGE [None]
  - DIVERTICULUM INTESTINAL HAEMORRHAGIC [None]
  - GENERAL PHYSICAL HEALTH DETERIORATION [None]
  - METABOLIC ENCEPHALOPATHY [None]
  - URINARY TRACT INFECTION [None]
  - NEURALGIA [None]
  - DECREASED APPETITE [None]
  - ANAEMIA OF CHRONIC DISEASE [None]
  - DEVICE EXPULSION [None]
  - PANCREATITIS ACUTE [None]
  - ATELECTASIS [None]
  - CONSTIPATION [None]
  - BLUNTED AFFECT [None]
  - GALLBLADDER DISORDER [None]
  - CHOLECYSTITIS [None]
  - INJURY [None]
  - LIVER ABSCESS [None]
  - LEUKOCYTOSIS [None]
  - DIARRHOEA [None]
  - KIDNEY INFECTION [None]
  - SPLENIC INFARCTION [None]
  - RENAL FAILURE [None]
  - HYPERTENSION [None]
  - HYPERCOAGULATION [None]
  - GALLBLADDER ENLARGEMENT [None]
  - THROMBOSIS [None]
  - AORTIC THROMBOSIS [None]
  - RENAL INFARCT [None]
  - ILEUS [None]
  - DEHYDRATION [None]
  - HERPES ZOSTER [None]
  - ASTHENIA [None]
  - ANXIETY DISORDER [None]
  - CHOLANGITIS [None]
